FAERS Safety Report 8853336 (Version 1)
Quarter: 2012Q4

REPORT INFORMATION
  Report Type: 
  Country: BR (occurrence: BR)
  Receive Date: 20121023
  Receipt Date: 20121023
  Transmission Date: 20130627
  Serious: Yes (Other)
  Sender: FDA-Public Use
  Company Number: BR-AMGEN-BRASP2012067055

PATIENT
  Age: 50 Year
  Sex: Female
  Weight: 55 kg

DRUGS (2)
  1. ENBREL [Suspect]
     Indication: ANKYLOSING SPONDYLITIS
     Dosage: 50 mg, qwk
     Route: 058
     Dates: start: 201110
  2. VOLTAREN                           /00372302/ [Concomitant]
     Dosage: unspecified dose, as needed

REACTIONS (5)
  - Vascular occlusion [Unknown]
  - Osteoarthritis [Unknown]
  - Wrong technique in drug usage process [Recovered/Resolved]
  - Pain in extremity [Unknown]
  - Injection site pain [Recovered/Resolved]
